FAERS Safety Report 10259746 (Version 1)
Quarter: 2014Q2

REPORT INFORMATION
  Report Type: Spontaneous
  Country: US (occurrence: US)
  Receive Date: 20140625
  Receipt Date: 20140625
  Transmission Date: 20141212
  Serious: No
  Sender: FDA-Public Use
  Company Number: US-ASTELLAS-2014US002408

PATIENT
  Sex: Male

DRUGS (3)
  1. VESICARE [Suspect]
     Indication: HYPERTONIC BLADDER
     Route: 048
     Dates: start: 201306, end: 201308
  2. VESICARE [Suspect]
     Route: 048
     Dates: start: 201308, end: 201309
  3. VESICARE [Suspect]
     Dosage: 5 MG, DAILY
     Route: 048
     Dates: start: 201309

REACTIONS (6)
  - Drug ineffective [Unknown]
  - Condition aggravated [Unknown]
  - Intentional product misuse [Unknown]
  - Dry mouth [Unknown]
  - Constipation [Unknown]
  - Vision blurred [Unknown]
